FAERS Safety Report 13705479 (Version 1)
Quarter: 2017Q2

REPORT INFORMATION
  Report Type: Report from Study
  Country: JP (occurrence: JP)
  Receive Date: 20170630
  Receipt Date: 20170630
  Transmission Date: 20170830
  Serious: Yes (Death, Other)
  Sender: FDA-Public Use
  Company Number: JP-SUN PHARMACEUTICAL INDUSTRIES LTD-2017RR-144014

PATIENT
  Age: 44 Year
  Sex: Female

DRUGS (4)
  1. CISPLATIN. [Suspect]
     Active Substance: CISPLATIN
     Dosage: 40 MG/M2
     Route: 065
  2. IRINOTECAN [Suspect]
     Active Substance: IRINOTECAN
     Dosage: 40 MG/M2
     Route: 065
  3. IRINOTECAN [Suspect]
     Active Substance: IRINOTECAN
     Indication: OVARIAN CLEAR CELL CARCINOMA
     Dosage: 60 MG/M2, ON DAYS 1, 8 AND 15, EVERY 4 WEEKS
     Route: 065
  4. CISPLATIN. [Suspect]
     Active Substance: CISPLATIN
     Indication: OVARIAN CLEAR CELL CARCINOMA
     Dosage: 60 MG/M2, ON DAY 1, EVERY 4 WEEKS
     Route: 065

REACTIONS (3)
  - Neoplasm progression [Fatal]
  - Diarrhoea [Unknown]
  - Disease recurrence [Unknown]
